FAERS Safety Report 7846747-6 (Version None)
Quarter: 2011Q4

REPORT INFORMATION
  Report Type: 
  Country: None (occurrence: None)
  Receive Date: 20111025
  Receipt Date: 20111019
  Transmission Date: 20120403
  Serious: Yes (Life-Threatening)
  Sender: FDA-Public Use
  Company Number: PHHY2011US38019

PATIENT
  Sex: Female

DRUGS (2)
  1. EXJADE [Suspect]
     Indication: LABORATORY TEST ABNORMAL
     Dosage: 1500 MG, DAILY
     Route: 048
     Dates: start: 20110421
  2. EXJADE [Suspect]
     Indication: ANAEMIA
     Dosage: 1000 MG, DAILY
     Route: 048

REACTIONS (3)
  - NAUSEA [None]
  - THROMBOSIS [None]
  - DIARRHOEA [None]
